FAERS Safety Report 13611526 (Version 1)
Quarter: 2017Q2

REPORT INFORMATION
  Report Type: Spontaneous
  Country: FR (occurrence: FR)
  Receive Date: 20170605
  Receipt Date: 20170605
  Transmission Date: 20170830
  Serious: Yes (Other)
  Sender: FDA-Public Use
  Company Number: FR-MALLINCKRODT-T201702289

PATIENT
  Age: 25 Year
  Sex: Female

DRUGS (1)
  1. OFIRMEV [Suspect]
     Active Substance: ACETAMINOPHEN
     Indication: HYPERTHERMIA
     Dosage: 1 G, UNK
     Route: 042
     Dates: start: 20170416

REACTIONS (3)
  - Product use issue [Unknown]
  - Urticaria [Recovered/Resolved]
  - Maternal exposure during pregnancy [Unknown]

NARRATIVE: CASE EVENT DATE: 20170416
